FAERS Safety Report 7207745-9 (Version None)
Quarter: 2011Q1

REPORT INFORMATION
  Report Type: 
  Country: None (occurrence: None)
  Receive Date: 20110103
  Receipt Date: 20101224
  Transmission Date: 20110831
  Serious: Yes (Life-Threatening)
  Sender: FDA-Public Use
  Company Number: JP-JNJFOC-20100708882

PATIENT
  Sex: Female
  Weight: 53 kg

DRUGS (8)
  1. PURSENNID [Concomitant]
     Indication: CONSTIPATION
     Route: 048
  2. DOXIL [Suspect]
     Indication: OVARIAN CANCER
     Dosage: CYCLE 1
     Route: 042
  3. BETAMETHASONE [Concomitant]
     Indication: CACHEXIA
     Route: 048
  4. ALDACTONE [Concomitant]
     Indication: ASCITES
     Route: 048
  5. DOXIL [Suspect]
     Indication: MALIGNANT ASCITES
     Dosage: CYCLE 1
     Route: 042
  6. LASIX [Concomitant]
     Indication: ASCITES
     Route: 048
  7. MAGMITT [Concomitant]
     Indication: CONSTIPATION
     Route: 048
  8. HYPEN [Concomitant]
     Indication: CANCER PAIN
     Route: 048

REACTIONS (1)
  - INTERSTITIAL LUNG DISEASE [None]
